FAERS Safety Report 17995434 (Version 1)
Quarter: 2020Q3

REPORT INFORMATION
  Report Type: Spontaneous
  Country: GB (occurrence: GB)
  Receive Date: 20200708
  Receipt Date: 20200708
  Transmission Date: 20201103
  Serious: Yes (Hospitalization)
  Sender: FDA-Public Use
  Company Number: GB-BAUSCH-BL-2020-019124

PATIENT
  Age: 32 Year
  Sex: Female

DRUGS (1)
  1. ACYCLOVIR. [Suspect]
     Active Substance: ACYCLOVIR
     Indication: HERPES SIMPLEX
     Dosage: STRENGTH: 400 MG
     Route: 048
     Dates: start: 2015

REACTIONS (2)
  - COVID-19 [Unknown]
  - Maternal exposure during breast feeding [Unknown]
